FAERS Safety Report 7680110-6 (Version None)
Quarter: 2011Q3

REPORT INFORMATION
  Report Type: 
  Country: None (occurrence: None)
  Receive Date: 20110812
  Receipt Date: 20110801
  Transmission Date: 20111222
  Serious: Yes (Other)
  Sender: FDA-Public Use
  Company Number: FR-ROCHE-794793

PATIENT

DRUGS (6)
  1. LEUCOVORIN CALCIUM [Suspect]
     Route: 065
  2. CAPECITABINE [Suspect]
     Route: 065
  3. FLUOROURACIL [Suspect]
     Route: 065
  4. BEVACIZUMAB [Suspect]
     Route: 065
  5. IRINOTECAN HCL [Suspect]
     Route: 065
  6. OXALIPLATIN [Suspect]
     Route: 065

REACTIONS (5)
  - THROMBOSIS [None]
  - GASTROINTESTINAL PERFORATION [None]
  - PROTEINURIA [None]
  - HYPERTENSION [None]
  - ARTERIAL THROMBOSIS [None]
